FAERS Safety Report 5807149-7 (Version None)
Quarter: 2008Q3

REPORT INFORMATION
  Report Type: 
  Country: None (occurrence: None)
  Receive Date: 20080711
  Receipt Date: 20080123
  Transmission Date: 20090109
  Serious: Yes (Hospitalization)
  Sender: FDA-Public Use
  Company Number: FR-AVENTIS-200810349FR

PATIENT
  Age: 74 Year
  Sex: Female
  Weight: 71 kg

DRUGS (9)
  1. BIPROFENID [Suspect]
     Route: 048
     Dates: start: 20070914, end: 20070915
  2. LASIX [Suspect]
     Indication: HYPERTENSION
     Route: 048
     Dates: end: 20070915
  3. COZAAR [Suspect]
     Route: 048
     Dates: end: 20070917
  4. GLUCOPHAGE [Concomitant]
     Indication: DIABETES MELLITUS
     Route: 048
     Dates: end: 20070916
  5. LANTUS [Concomitant]
     Indication: DIABETES MELLITUS
     Route: 058
     Dates: end: 20070917
  6. DAONIL [Concomitant]
     Indication: DIABETES MELLITUS
     Route: 048
     Dates: end: 20070915
  7. COUMADIN [Concomitant]
     Route: 048
     Dates: end: 20070917
  8. METEOSPASMYL                       /01017401/ [Concomitant]
     Route: 048
     Dates: start: 20070912, end: 20070915
  9. INIPOMP                            /01263201/ [Concomitant]
     Indication: PROPHYLAXIS
     Route: 048
     Dates: start: 20070914

REACTIONS (2)
  - DRUG INTERACTION [None]
  - RENAL FAILURE ACUTE [None]
